FAERS Safety Report 6787804-5 (Version None)
Quarter: 2010Q2

REPORT INFORMATION
  Report Type: 
  Country: None (occurrence: None)
  Receive Date: 20100623
  Receipt Date: 20071011
  Transmission Date: 20101027
  Serious: Yes (Other)
  Sender: FDA-Public Use
  Company Number: US-PFIZER INC-2007056807

PATIENT
  Sex: Male
  Weight: 97.5 kg

DRUGS (22)
  1. SUTENT [Suspect]
     Indication: RENAL CANCER
     Dosage: CYCLIC OD: 4 WEEKS ON, 2 WEEKS OFF
     Route: 048
     Dates: start: 20060411
  2. SUTENT [Suspect]
     Dosage: CYCLIC OD: 4 WEEKS ON, 2 WEEKS OFF
     Route: 048
     Dates: start: 20060824, end: 20060921
  3. PROTONIX [Concomitant]
     Route: 048
  4. OXYCODONE HCL [Concomitant]
  5. PERCOCET [Concomitant]
  6. VIAGRA [Concomitant]
  7. BENZONATATE [Concomitant]
     Dosage: FREQUENCY: PNR
     Route: 048
  8. ALPRAZOLAM [Concomitant]
     Route: 048
  9. METFORMIN HYDROCHLORIDE [Concomitant]
     Dosage: 500 MG 1/2
     Route: 048
  10. OMEPRAZOLE [Concomitant]
     Route: 048
  11. DIFLUCAN [Concomitant]
     Dosage: FREQUENCY: PNR
     Route: 048
  12. GUAIFENEX DM [Concomitant]
     Dosage: FREQUENCY: PNR
     Route: 048
  13. LISINOPRIL [Concomitant]
     Dosage: 2 P.O. IN A.M.
     Route: 048
  14. SYNTHROID [Concomitant]
     Route: 048
  15. TRIAMTERENE AND HYDROCHLOROTHIAZIDE [Concomitant]
     Dosage: 50/75 MG
     Route: 048
  16. ZOFRAN [Concomitant]
     Dosage: FREQUENCY: PNR
     Route: 048
  17. VYTORIN [Concomitant]
     Dosage: 10/20 MG,FREQUENCY: QHS
     Route: 048
  18. ALBUTEROL [Concomitant]
     Dosage: FREQUENCY: PNR
     Route: 055
  19. UNISOM [Concomitant]
  20. ACIDOPHILUS [Concomitant]
     Route: 048
  21. IRON [Concomitant]
     Route: 048
  22. VITAMIN C [Concomitant]
     Route: 048

REACTIONS (6)
  - DYSPNOEA [None]
  - EJECTION FRACTION DECREASED [None]
  - HYPOTHYROIDISM [None]
  - IMMUNOSUPPRESSION [None]
  - SINUSITIS [None]
  - STOMATITIS [None]
